FAERS Safety Report 6945379-1 (Version None)
Quarter: 2010Q3

REPORT INFORMATION
  Report Type: 
  Country: None (occurrence: None)
  Receive Date: 20100827
  Receipt Date: 20100825
  Transmission Date: 20110219
  Serious: Yes (Other)
  Sender: FDA-Public Use
  Company Number: TW-ROCHE-716627

PATIENT

DRUGS (2)
  1. MIRCERA [Suspect]
     Route: 065
     Dates: start: 20100301, end: 20100801
  2. MIRCERA [Suspect]
     Route: 065
     Dates: start: 20100801

REACTIONS (1)
  - HAEMATOCRIT DECREASED [None]
